FAERS Safety Report 17105182 (Version 1)
Quarter: 2019Q4

REPORT INFORMATION
  Report Type: Spontaneous
  Country: ES (occurrence: ES)
  Receive Date: 20191203
  Receipt Date: 20191203
  Transmission Date: 20200122
  Serious: Yes (Other)
  Sender: FDA-Public Use
  Company Number: ES-TEVA-2019-ES-1144472

PATIENT
  Age: 77 Year
  Sex: Female

DRUGS (10)
  1. MULTAQ 400 MG COMPRIMIDOS RECUBIERTOS CON PELICULA, 60 COMPRIMIDOS [Concomitant]
  2. ALOPURINOL (318A) [Suspect]
     Active Substance: ALLOPURINOL
     Indication: HYPERURICAEMIA
     Dosage: 1 EVERY 24 HOURS (100MG)
     Route: 048
     Dates: start: 20190930, end: 20191031
  3. PARACETAMOL 1.000 MG 40 COMPRIMIDOS [Concomitant]
  4. ATORVASTATINA 10 MG 28 COMPRIMIDOS [Concomitant]
  5. BALZAK PLUS 40 MG/10 MG/25 MG COMPRIMIDOS RECUBIERTOS CON PELICULA , 2 [Concomitant]
  6. ATENOLOL 50 MG 30 COMPRIMIDOS [Concomitant]
  7. GANFORT 0,3 MG/ML +5 MG/ML COLIRIO EN SOLUCION [Concomitant]
  8. SINTROM [Concomitant]
     Active Substance: ACENOCOUMAROL
  9. EUTIROX 100 MICROGRAMOS COMPRIMIDOS , 100 COMPRIMIDOS [Concomitant]
     Active Substance: LEVOTHYROXINE SODIUM
  10. ESOMEPRAZOL 20 MG 28 CAPSULAS [Concomitant]

REACTIONS (4)
  - Rash [Recovering/Resolving]
  - Pain in extremity [Recovering/Resolving]
  - Oedema [Recovering/Resolving]
  - Pruritus [Recovering/Resolving]

NARRATIVE: CASE EVENT DATE: 20191028
